FAERS Safety Report 6520548-3 (Version None)
Quarter: 2009Q4

REPORT INFORMATION
  Report Type: 
  Country: None (occurrence: None)
  Receive Date: 20091229
  Receipt Date: 20091224
  Transmission Date: 20100525
  Serious: Yes (Death, Hospitalization)
  Sender: FDA-Public Use
  Company Number: JP-BAYER-200811447BYL

PATIENT
  Age: 57 Year
  Sex: Male
  Weight: 62 kg

DRUGS (5)
  1. NEXAVAR [Suspect]
     Indication: RENAL CELL CARCINOMA
     Dosage: TOTAL DAILY DOSE: 800 MG  UNIT DOSE: 200 MG
     Route: 048
     Dates: start: 20080609, end: 20080623
  2. FAMOTIDINE [Concomitant]
     Route: 048
     Dates: start: 20080609, end: 20080623
  3. GASMOTIN [Concomitant]
     Indication: GASTRITIS
     Route: 048
     Dates: start: 20080609, end: 20080623
  4. EURODIN [Concomitant]
     Indication: INSOMNIA
     Route: 048
     Dates: start: 20080609, end: 20080623
  5. LAXOBERON [Concomitant]
     Indication: CONSTIPATION
     Route: 048
     Dates: start: 20080609, end: 20080623

REACTIONS (3)
  - LIVER DISORDER [None]
  - RASH GENERALISED [None]
  - RENAL CELL CARCINOMA STAGE IV [None]
